FAERS Safety Report 25339683 (Version 2)
Quarter: 2025Q2

REPORT INFORMATION
  Report Type: Report from Study
  Country: US (occurrence: US)
  Receive Date: 20250521
  Receipt Date: 20250617
  Transmission Date: 20250717
  Serious: Yes (Hospitalization)
  Sender: UCB
  Company Number: US-UCBSA-2025027075

PATIENT
  Age: 13 Year
  Sex: Female
  Weight: 33 kg

DRUGS (1)
  1. FINTEPLA [Suspect]
     Active Substance: FENFLURAMINE
     Indication: Lennox-Gastaut syndrome
     Dosage: 4 MILLILITER, 2X/DAY (BID) VIA G-TUBE (8.8 MILLIGRAM)

REACTIONS (2)
  - Tachycardia [Unknown]
  - Sepsis [Unknown]

NARRATIVE: CASE EVENT DATE: 20250504
